FAERS Safety Report 7325710-8 (Version None)
Quarter: 2011Q1

REPORT INFORMATION
  Report Type: 
  Country: None (occurrence: None)
  Receive Date: 20110216
  Receipt Date: 20110209
  Transmission Date: 20110831
  Serious: Yes (Other)
  Sender: FDA-Public Use
  Company Number: 2011SP006506

PATIENT

DRUGS (1)
  1. REMERON [Suspect]
     Indication: DEPRESSION
     Dosage: ;PO
     Route: 048

REACTIONS (1)
  - THROMBIN TIME PROLONGED [None]
